FAERS Safety Report 7285324-5 (Version None)
Quarter: 2011Q1

REPORT INFORMATION
  Report Type: 
  Country: None (occurrence: None)
  Receive Date: 20110210
  Receipt Date: 20110203
  Transmission Date: 20110831
  Serious: Yes (Hospitalization)
  Sender: FDA-Public Use
  Company Number: NL-ROCHE-756439

PATIENT
  Sex: Female

DRUGS (3)
  1. TRASTUZUMAB [Suspect]
     Dosage: LOADING DOSE FOLLOWED BY MAINTAINENCE DOSE.
     Route: 065
     Dates: start: 20101105
  2. CANDESARTAN CILEXETIL [Suspect]
     Dosage: CUMULATIVE DOSE: 32 MG.
     Route: 048
     Dates: start: 20101113
  3. CANDESARTAN CILEXETIL [Suspect]
     Indication: CARDIOTOXICITY
     Route: 048
     Dates: start: 20101105, end: 20101112

REACTIONS (1)
  - RADIATION SKIN INJURY [None]
